FAERS Safety Report 7280387-5 (Version None)
Quarter: 2011Q1

REPORT INFORMATION
  Report Type: 
  Country: None (occurrence: None)
  Receive Date: 20110208
  Receipt Date: 20110127
  Transmission Date: 20110831
  Serious: Yes (Hospitalization)
  Sender: FDA-Public Use
  Company Number: GB-ELI_LILLY_AND_COMPANY-GB201101006693

PATIENT
  Sex: Male

DRUGS (3)
  1. HUMULIN N [Suspect]
     Dosage: UNK, 2/D
  2. HUMALOG MIX 75/25 [Suspect]
  3. HUMALOG [Suspect]
     Dosage: UNK, 2/D

REACTIONS (3)
  - WRONG DRUG ADMINISTERED [None]
  - HOSPITALISATION [None]
  - HYPOGLYCAEMIA [None]
